FAERS Safety Report 7884858-X (Version None)
Quarter: 2011Q4

REPORT INFORMATION
  Report Type: 
  Country: None (occurrence: None)
  Receive Date: 20111102
  Receipt Date: 20111026
  Transmission Date: 20120403
  Serious: Yes (Other)
  Sender: FDA-Public Use
  Company Number: PHHY2011DE63412

PATIENT
  Sex: Female

DRUGS (1)
  1. GILENYA [Suspect]
     Indication: MULTIPLE SCLEROSIS
     Dosage: 0.5 MG DAILY
     Route: 048
     Dates: start: 20100901

REACTIONS (7)
  - VAGINAL INFECTION [None]
  - PRURITUS [None]
  - ERYTHEMA MIGRANS [None]
  - VULVOVAGINAL PRURITUS [None]
  - LYME DISEASE [None]
  - RASH [None]
  - MENOPAUSAL DISORDER [None]
